FAERS Safety Report 6610241-0 (Version None)
Quarter: 2010Q1

REPORT INFORMATION
  Report Type: 
  Country: None (occurrence: None)
  Receive Date: 20100302
  Receipt Date: 20100216
  Transmission Date: 20100710
  Serious: Yes (Hospitalization, Other)
  Sender: FDA-Public Use
  Company Number: AU-BAUSCH-2010BL000644

PATIENT
  Age: 48 Year
  Sex: Female

DRUGS (1)
  1. FLUOCINOLONE ACETONIDE [Suspect]
     Indication: UVEITIS
     Route: 047
     Dates: start: 20030404, end: 20100112

REACTIONS (4)
  - BLINDNESS [None]
  - MEDICAL DEVICE COMPLICATION [None]
  - RETINAL TEAR [None]
  - VITREOUS FLOATERS [None]
